FAERS Safety Report 10337878 (Version 1)
Quarter: 2014Q3

REPORT INFORMATION
  Report Type: Spontaneous
  Country: US (occurrence: US)
  Receive Date: 20140724
  Receipt Date: 20140724
  Transmission Date: 20150326
  Serious: Yes (Hospitalization)
  Sender: FDA-Public Use
  Company Number: US-UNITED THERAPEUTICS-UTC-044978

PATIENT
  Age: 50 Year
  Sex: Female

DRUGS (7)
  1. FUROSEMIDE. [Concomitant]
     Active Substance: FUROSEMIDE
  2. NEXIUM [Concomitant]
     Active Substance: ESOMEPRAZOLE MAGNESIUM
  3. LETAIRIS [Concomitant]
     Active Substance: AMBRISENTAN
  4. ATENOLOL. [Concomitant]
     Active Substance: ATENOLOL
  5. DIGOXIN. [Concomitant]
     Active Substance: DIGOXIN
  6. TYVASO [Suspect]
     Active Substance: TREPROSTINIL
     Dates: start: 20130508
  7. PROCARDIA [Concomitant]
     Active Substance: NIFEDIPINE

REACTIONS (1)
  - Pneumonia [Unknown]

NARRATIVE: CASE EVENT DATE: 201402
